FAERS Safety Report 7663537-8 (Version None)
Quarter: 2011Q3

REPORT INFORMATION
  Report Type: 
  Country: None (occurrence: None)
  Receive Date: 20110805
  Receipt Date: 20100813
  Transmission Date: 20111222
  Serious: No
  Sender: FDA-Public Use
  Company Number: US-ABBOTT-10P-163-0664446-00

PATIENT
  Sex: Female

DRUGS (5)
  1. NIASPAN [Suspect]
     Indication: BLOOD TRIGLYCERIDES INCREASED
     Dates: start: 20100501, end: 20100701
  2. NIASPAN [Suspect]
     Dates: start: 20100701
  3. ATENOLOL [Concomitant]
     Indication: HYPERTENSION
     Dates: start: 20000101
  4. LISINOPRIL AND HYDROCHLOROTHIAZIDE [Concomitant]
     Indication: PRODUCT USED FOR UNKNOWN INDICATION
     Dosage: 10/12.5 MG DAILY
     Dates: start: 20080101
  5. METFORMIN HCL [Concomitant]
     Indication: DIABETES MELLITUS
     Dates: start: 20040101

REACTIONS (2)
  - FLUSHING [None]
  - BLOOD GLUCOSE INCREASED [None]
